FAERS Safety Report 9149546 (Version 2)
Quarter: 2013Q2

REPORT INFORMATION
  Report Type: Spontaneous
  Country: US (occurrence: US)
  Receive Date: 20130308
  Receipt Date: 20130425
  Transmission Date: 20140414
  Serious: No
  Sender: FDA-Public Use
  Company Number: US-VERTEX PHARMACEUTICALS INC.-2013-003107

PATIENT
  Age: 51 Year
  Sex: Male
  Weight: 79 kg

DRUGS (3)
  1. INCIVEK [Suspect]
     Indication: HEPATITIS C
     Dosage: 750 MG, TID
     Route: 048
     Dates: start: 20130207, end: 20130409
  2. COPEGUS [Suspect]
     Indication: HEPATITIS C
     Dosage: 600 MG, BID
     Dates: start: 20130207, end: 20130409
  3. PEGASYS [Suspect]
     Indication: HEPATITIS C
     Dosage: 180 ?G, QW
     Route: 058
     Dates: start: 20130207, end: 20130409

REACTIONS (9)
  - Dizziness [Recovered/Resolved]
  - Skin discolouration [Not Recovered/Not Resolved]
  - Skin burning sensation [Not Recovered/Not Resolved]
  - Decreased appetite [Recovered/Resolved]
  - Insomnia [Recovered/Resolved]
  - Loss of consciousness [Recovered/Resolved]
  - Rash pruritic [Not Recovered/Not Resolved]
  - Pruritus [Recovered/Resolved]
  - Haemorrhoids [Recovered/Resolved]
